FAERS Safety Report 8266642-0 (Version None)
Quarter: 2012Q2

REPORT INFORMATION
  Report Type: 
  Country: None (occurrence: None)
  Receive Date: 20120407
  Receipt Date: 20120327
  Transmission Date: 20120825
  Serious: Yes (Hospitalization)
  Sender: FDA-Public Use
  Company Number: IT-ASTRAZENECA-2012SE20595

PATIENT
  Age: 30727 Day
  Sex: Female

DRUGS (1)
  1. CRESTOR [Suspect]
     Indication: PROPHYLAXIS
     Route: 048
     Dates: start: 20120314, end: 20120314

REACTIONS (2)
  - URTICARIA [None]
  - OEDEMA MUCOSAL [None]
